FAERS Safety Report 8721202 (Version 2)
Quarter: 2012Q4

REPORT INFORMATION
  Report Type: 
  Country: JP (occurrence: JP)
  Receive Date: 20120813
  Receipt Date: 20121113
  Transmission Date: 20130627
  Serious: Yes (Hospitalization, Other)
  Sender: FDA-Public Use
  Company Number: JP-009507513-1208JPN005217

PATIENT
  Age: 61 Year
  Sex: Female
  Weight: 67 kg

DRUGS (15)
  1. PEGINTRON [Suspect]
     Indication: HEPATITIS C
     Dosage: 1.5 Microgram per kilogram, qw
     Route: 058
     Dates: start: 20120411, end: 20120605
  2. PEGINTRON [Suspect]
     Dosage: 1.5 Microgram per kilogram, qw
     Route: 058
     Dates: start: 20120613, end: 20120926
  3. REBETOL [Suspect]
     Indication: HEPATITIS C
     Dosage: 600 mg, qd
     Route: 048
     Dates: start: 20120411, end: 20120522
  4. REBETOL [Suspect]
     Dosage: 400 mg, qd
     Route: 048
     Dates: start: 20120523, end: 20120605
  5. REBETOL [Suspect]
     Dosage: 200 mg, qd
     Route: 048
     Dates: start: 20120627, end: 20120703
  6. REBETOL [Suspect]
     Dosage: 400 mg, qd
     Route: 048
     Dates: start: 20120704, end: 20120725
  7. REBETOL [Suspect]
     Dosage: 200 mg, On even days
     Route: 048
     Dates: start: 20120726, end: 20120904
  8. REBETOL [Suspect]
     Dosage: 400 mg, on odd days
     Route: 048
     Dates: start: 20120727, end: 20120903
  9. REBETOL [Suspect]
     Dosage: 600 mg, qd
     Route: 048
     Dates: start: 20120905, end: 20121002
  10. TELAVIC [Suspect]
     Indication: HEPATITIS C
     Dosage: 1500 mg, qd
     Route: 048
     Dates: start: 20120411, end: 20120605
  11. TELAVIC [Suspect]
     Dosage: 750 mg, qd
     Route: 048
     Dates: start: 20120613, end: 20120710
  12. ROCEPHIN [Suspect]
     Indication: ADVERSE EVENT
     Dosage: 2 g, qd
     Route: 042
     Dates: start: 20120529, end: 20120604
  13. BLOPRESS [Concomitant]
     Indication: HYPERTENSION
     Dosage: Morning,Evening
     Route: 048
  14. NORVASC OD [Concomitant]
     Indication: HYPERTENSION
     Dosage: Morning
     Route: 048
  15. ALLEGRA [Concomitant]
     Indication: RHINITIS ALLERGIC
     Dosage: 120 mg, qd
     Route: 048

REACTIONS (2)
  - Pyelonephritis acute [Recovered/Resolved]
  - Haemoglobin decreased [Recovering/Resolving]
